FAERS Safety Report 5533142-8 (Version None)
Quarter: 2007Q4

REPORT INFORMATION
  Report Type: 
  Country: None (occurrence: None)
  Receive Date: 20071204
  Receipt Date: 20071127
  Transmission Date: 20080405
  Serious: Yes (Other)
  Sender: FDA-Public Use
  Company Number: GB-AVENTIS-200720988GDDC

PATIENT
  Age: 43 Year
  Sex: Female

DRUGS (2)
  1. METRONIDAZOLE [Suspect]
     Indication: POSTOPERATIVE CARE
     Route: 048
     Dates: start: 20071030, end: 20071102
  2. AMOXIL [Concomitant]
     Indication: POSTOPERATIVE CARE
     Route: 048
     Dates: start: 20071030, end: 20071030

REACTIONS (1)
  - FACE OEDEMA [None]
